FAERS Safety Report 22617371 (Version 1)
Quarter: 2023Q2

REPORT INFORMATION
  Report Type: Spontaneous
  Country: CN (occurrence: CN)
  Receive Date: 20230620
  Receipt Date: 20230620
  Transmission Date: 20230722
  Serious: Yes (Other)
  Sender: FDA-Public Use
  Company Number: CN-NOVAST LABORATORIES INC.-2023NOV000270

PATIENT

DRUGS (3)
  1. METOPROLOL SUCCINATE [Suspect]
     Active Substance: METOPROLOL SUCCINATE
     Indication: Renal hypertension
     Dosage: 23.75 MILLIGRAM PER DAY
     Route: 048
     Dates: start: 20230510, end: 20230530
  2. IMIPENEM AND CILASTATIN SODIUM [Suspect]
     Active Substance: CILASTATIN SODIUM\IMIPENEM
     Indication: Anti-infective therapy
     Dosage: 0.5 GRAM, 0.5 DAYS
     Route: 042
     Dates: start: 20230518, end: 20230530
  3. SODIUM CHLORIDE [Concomitant]
     Active Substance: SODIUM CHLORIDE
     Indication: Vehicle solution use
     Dosage: 50 MILLILITERS PER 0.5 DAYS
     Route: 042
     Dates: start: 20230518, end: 20230530

REACTIONS (2)
  - Musculoskeletal stiffness [Unknown]
  - Muscle twitching [Unknown]

NARRATIVE: CASE EVENT DATE: 20230530
